FAERS Safety Report 19031835 (Version 1)
Quarter: 2021Q1

REPORT INFORMATION
  Report Type: Spontaneous
  Country: US (occurrence: US)
  Receive Date: 20210319
  Receipt Date: 20210319
  Transmission Date: 20210420
  Serious: No
  Sender: FDA-Public Use
  Company Number: US-PFIZER INC-2017488645

PATIENT
  Age: 55 Year
  Sex: Female

DRUGS (2)
  1. LYRICA [Suspect]
     Active Substance: PREGABALIN
     Indication: POLYNEUROPATHY
     Dosage: 100 MG (TAKE 1 CAPSULE(S) BY MOUTH FIVE TIMES A DAY)
     Route: 048
  2. LORAZEPAM. [Concomitant]
     Active Substance: LORAZEPAM
     Indication: ANXIETY
     Dosage: 1 MG, AS NEEDED (BID ? TID PRN ANXIETY NOT MORE THAN 2 1/2 PER DAY)
     Route: 048

REACTIONS (2)
  - Visual impairment [Unknown]
  - Muscle twitching [Unknown]
